FAERS Safety Report 6520591-4 (Version None)
Quarter: 2009Q4

REPORT INFORMATION
  Report Type: 
  Country: None (occurrence: None)
  Receive Date: 20091229
  Receipt Date: 20091216
  Transmission Date: 20100525
  Serious: Yes (Other)
  Sender: FDA-Public Use
  Company Number: JP-BRISTOL-MYERS SQUIBB COMPANY-14904569

PATIENT
  Age: 61 Year
  Sex: Male

DRUGS (2)
  1. PARAPLATIN [Suspect]
     Indication: LUNG NEOPLASM MALIGNANT
     Route: 041
  2. DOCETAXEL [Suspect]
     Indication: LUNG NEOPLASM MALIGNANT
     Dosage: FORMULATION:INJ
     Route: 041

REACTIONS (3)
  - AMOEBIC DYSENTERY [None]
  - ENTEROVESICAL FISTULA [None]
  - LIVER ABSCESS [None]
